FAERS Safety Report 19103452 (Version 11)
Quarter: 2023Q4

REPORT INFORMATION
  Report Type: Report from Study
  Country: CA (occurrence: CA)
  Receive Date: 20210407
  Receipt Date: 20231211
  Transmission Date: 20240110
  Serious: Yes (Hospitalization, Other)
  Sender: FDA-Public Use
  Company Number: CA-TAKEDA-CA201917469

PATIENT
  Sex: Male
  Weight: 51.701 kg

DRUGS (32)
  1. TEDUGLUTIDE [Suspect]
     Active Substance: TEDUGLUTIDE
     Indication: Short-bowel syndrome
     Dosage: 2.5 MILLIGRAM, QD
     Route: 050
     Dates: start: 20170830
  2. TEDUGLUTIDE [Suspect]
     Active Substance: TEDUGLUTIDE
     Indication: Short-bowel syndrome
     Dosage: 2.5 MILLIGRAM, QD
     Route: 050
     Dates: start: 20170830
  3. TEDUGLUTIDE [Suspect]
     Active Substance: TEDUGLUTIDE
     Indication: Short-bowel syndrome
     Dosage: 2.5 MILLIGRAM, QD
     Route: 050
     Dates: start: 20170830
  4. TEDUGLUTIDE [Suspect]
     Active Substance: TEDUGLUTIDE
     Indication: Short-bowel syndrome
     Dosage: 2.5 MILLIGRAM, QD
     Route: 050
     Dates: start: 20170830
  5. TEDUGLUTIDE [Suspect]
     Active Substance: TEDUGLUTIDE
     Dosage: 2.5 MILLIGRAM, QD
     Route: 050
  6. TEDUGLUTIDE [Suspect]
     Active Substance: TEDUGLUTIDE
     Dosage: 2.5 MILLIGRAM, QD
     Route: 050
  7. TEDUGLUTIDE [Suspect]
     Active Substance: TEDUGLUTIDE
     Dosage: 2.5 MILLIGRAM, QD
     Route: 050
  8. TEDUGLUTIDE [Suspect]
     Active Substance: TEDUGLUTIDE
     Dosage: 2.5 MILLIGRAM, QD
     Route: 050
  9. TEDUGLUTIDE [Suspect]
     Active Substance: TEDUGLUTIDE
     Dosage: 8 MILLIGRAM
     Route: 065
  10. TEDUGLUTIDE [Suspect]
     Active Substance: TEDUGLUTIDE
     Dosage: 8 MILLIGRAM
     Route: 065
  11. TEDUGLUTIDE [Suspect]
     Active Substance: TEDUGLUTIDE
     Dosage: 8 MILLIGRAM
     Route: 065
  12. TEDUGLUTIDE [Suspect]
     Active Substance: TEDUGLUTIDE
     Dosage: 8 MILLIGRAM
     Route: 065
  13. TEDUGLUTIDE [Suspect]
     Active Substance: TEDUGLUTIDE
     Dosage: 2.5 MILLIGRAM, QD
     Route: 058
  14. TEDUGLUTIDE [Suspect]
     Active Substance: TEDUGLUTIDE
     Dosage: 2.5 MILLIGRAM, QD
     Route: 058
  15. TEDUGLUTIDE [Suspect]
     Active Substance: TEDUGLUTIDE
     Dosage: 2.5 MILLIGRAM, QD
     Route: 058
  16. TEDUGLUTIDE [Suspect]
     Active Substance: TEDUGLUTIDE
     Dosage: 2.5 MILLIGRAM, QD
     Route: 058
  17. IRON [Concomitant]
     Active Substance: IRON
     Dosage: UNK
     Dates: start: 20220908
  18. OPIUM TINCTURE [Concomitant]
     Active Substance: MORPHINE
     Indication: Diarrhoea
     Dosage: UNK
  19. ATIVAN [Concomitant]
     Active Substance: LORAZEPAM
     Dosage: UNK
  20. ZOLEDRONIC ACID [Concomitant]
     Active Substance: ZOLEDRONIC ACID
     Dosage: UNK
  21. BUDESONIDE [Concomitant]
     Active Substance: BUDESONIDE
     Dosage: 9 MILLIGRAM, QD
     Route: 048
  22. URSODIOL [Concomitant]
     Active Substance: URSODIOL
     Dosage: 250 MILLIGRAM, TID
     Route: 048
  23. PREVACID [Concomitant]
     Active Substance: LANSOPRAZOLE
     Dosage: 30 MILLIGRAM, BID
     Route: 048
  24. ENTYVIO [Concomitant]
     Active Substance: VEDOLIZUMAB
     Dosage: 300 MILLIGRAM, Q4WEEKS
     Route: 042
  25. MERCAPTOPURINE [Concomitant]
     Active Substance: MERCAPTOPURINE
     Indication: Product used for unknown indication
     Dosage: 50 MILLIGRAM, QD
     Route: 048
  26. MERCAPTOPURINE [Concomitant]
     Active Substance: MERCAPTOPURINE
     Dosage: 75 MILLIGRAM, QD
     Route: 048
  27. BUDESONIDE [Concomitant]
     Active Substance: BUDESONIDE
     Indication: Crohn^s disease
     Dosage: 6 MILLIGRAM, QD
     Route: 065
  28. BUDESONIDE [Concomitant]
     Active Substance: BUDESONIDE
     Dosage: 9 MILLIGRAM, QD
     Route: 048
  29. STELARA [Concomitant]
     Active Substance: USTEKINUMAB
     Dosage: UNK
  30. AMLODIPINE [Concomitant]
     Active Substance: AMLODIPINE BESYLATE
     Dosage: 5 MILLIGRAM, QD
     Route: 048
  31. ENTOCORT [Concomitant]
     Active Substance: BUDESONIDE
     Indication: Crohn^s disease
     Dosage: 6 MILLIGRAM
     Route: 065
  32. CELEXA [Concomitant]
     Active Substance: CITALOPRAM HYDROBROMIDE
     Dosage: UNK
     Route: 065

REACTIONS (5)
  - Crohn^s disease [Recovering/Resolving]
  - Gastrointestinal haemorrhage [Unknown]
  - Blood pressure increased [Unknown]
  - Dehydration [Recovering/Resolving]
  - Inflammation [Unknown]
